FAERS Safety Report 8573372-4 (Version None)
Quarter: 2012Q3

REPORT INFORMATION
  Report Type: 
  Country: None (occurrence: None)
  Receive Date: 20120806
  Receipt Date: 20120802
  Transmission Date: 20120928
  Serious: Yes (Hospitalization, Other)
  Sender: FDA-Public Use
  Company Number: JP-PFIZER INC-2012161980

PATIENT
  Age: 72 Year
  Sex: Male

DRUGS (5)
  1. NORVASC [Suspect]
     Indication: HYPERTENSION
     Dosage: 5 MG, 1X/DAY
     Route: 048
     Dates: start: 20020101, end: 20120325
  2. GASCON [Concomitant]
     Indication: FLATULENCE
     Dosage: UNK
     Route: 048
  3. ACECOL [Concomitant]
     Indication: HYPERTENSION
     Dosage: 2 MG, 1X/DAY
     Route: 048
     Dates: end: 20120314
  4. GASMOTIN [Concomitant]
     Dosage: UNK
     Route: 048
  5. CANDESARTAN CILEXETIL [Concomitant]
     Indication: HYPERTENSION
     Dosage: 4 MG, 1X/DAY
     Route: 048
     Dates: start: 20120315

REACTIONS (2)
  - ENTERITIS INFECTIOUS [None]
  - LYMPHOMA [None]
